FAERS Safety Report 15317055 (Version 15)
Quarter: 2020Q2

REPORT INFORMATION
  Report Type: Spontaneous
  Country: US (occurrence: US)
  Receive Date: 20180824
  Receipt Date: 20200422
  Transmission Date: 20200713
  Serious: Yes (Hospitalization, Other)
  Sender: FDA-Public Use
  Company Number: US-PFIZER INC-2018018743

PATIENT
  Age: 69 Year
  Sex: Male
  Weight: 86 kg

DRUGS (21)
  1. LYRICA [Suspect]
     Active Substance: PREGABALIN
     Indication: NEUROPATHY PERIPHERAL
     Dosage: 100 MG, 2X/DAY (ONE IN THE MORNING, ONE IN THE EVENING BEFORE BED)
     Route: 048
     Dates: start: 2001
  2. LYRICA [Suspect]
     Active Substance: PREGABALIN
     Dosage: 1 DF, UNK
  3. AMLODIPINE [Concomitant]
     Active Substance: AMLODIPINE BESYLATE
     Indication: HYPERTENSION
     Dosage: 1 DF, DAILY (IN THE MORNING)
     Route: 048
     Dates: start: 20030208
  4. ALLOPURINOL. [Concomitant]
     Active Substance: ALLOPURINOL
     Dosage: 300 MG, ALTERNATE DAY,(300 MG 1 X EVERY OTHER)
     Dates: start: 2013
  5. ALLOPURINOL. [Concomitant]
     Active Substance: ALLOPURINOL
     Dosage: UNK
     Dates: start: 2010
  6. AMLODIPINE BESILATE/OLMESARTAN MEDOXOMIL [Concomitant]
     Active Substance: AMLODIPINE BESYLATE\OLMESARTAN MEDOXOMIL
     Dosage: UNK
     Dates: start: 2010
  7. PANTOPRAZOLE SODIUM. [Concomitant]
     Active Substance: PANTOPRAZOLE SODIUM
     Dosage: UNK
     Dates: start: 2016
  8. TAMSULOSIN HCL [Concomitant]
     Active Substance: TAMSULOSIN HYDROCHLORIDE
     Indication: PROSTATOMEGALY
     Dosage: 0.4 MG, UNK
     Dates: start: 2015
  9. LYRICA [Suspect]
     Active Substance: PREGABALIN
     Dosage: 2 DF, UNK
  10. ALLOPURINOL. [Concomitant]
     Active Substance: ALLOPURINOL
     Indication: GOUT
     Dosage: 300 MG, ALTERNATE DAY
     Dates: start: 2008
  11. MINOCYCLINE [Concomitant]
     Active Substance: MINOCYCLINE HYDROCHLORIDE
     Indication: INFECTION
     Dosage: 100 MG, 2X/DAY, (100 MG 2 X)
     Dates: start: 2019
  12. LYRICA [Suspect]
     Active Substance: PREGABALIN
     Dosage: 3 DF, UNK
  13. AMLODIPINE [Concomitant]
     Active Substance: AMLODIPINE BESYLATE
     Dosage: UNK, 1X/DAY (5/20)
     Dates: start: 2009
  14. TAMSULOSIN HCL [Concomitant]
     Active Substance: TAMSULOSIN HYDROCHLORIDE
     Indication: PROSTATE CANCER
     Dosage: 0.4 MG, 1X/DAY, (0.4 MG 1 X)
     Dates: start: 2013
  15. AMITRIPTYLINE [Concomitant]
     Active Substance: AMITRIPTYLINE
     Indication: NEURALGIA
     Dosage: 30 MG, UNK
     Dates: start: 2019
  16. AMLODIPINE BESILATE/OLMESARTAN MEDOXOMIL [Concomitant]
     Active Substance: AMLODIPINE BESYLATE\OLMESARTAN MEDOXOMIL
     Dosage: UNK
     Dates: start: 2009
  17. LYRICA [Suspect]
     Active Substance: PREGABALIN
     Dosage: 300 MG, UNK
     Dates: start: 2004
  18. AMLODIPINE [Concomitant]
     Active Substance: AMLODIPINE BESYLATE
     Dosage: UNK
     Dates: start: 2010
  19. PANTOPRAZOLE SODIUM. [Concomitant]
     Active Substance: PANTOPRAZOLE SODIUM
     Indication: GASTROOESOPHAGEAL REFLUX DISEASE
     Dosage: 40 MG, 1X/DAY, (40 MG 1 X)
     Dates: start: 2009
  20. PANTOPRAZOLE SODIUM. [Concomitant]
     Active Substance: PANTOPRAZOLE SODIUM
     Indication: IRRITABLE BOWEL SYNDROME
     Dosage: 40 MG, UNK
     Dates: start: 2015
  21. AMLODIPINE BESILATE/OLMESARTAN MEDOXOMIL [Concomitant]
     Active Substance: AMLODIPINE BESYLATE\OLMESARTAN MEDOXOMIL
     Indication: HYPERTENSION
     Dosage: 20 MG, UNK
     Dates: start: 2003

REACTIONS (14)
  - Withdrawal syndrome [Recovered/Resolved]
  - Dermatitis contact [Recovered/Resolved]
  - Intentional product use issue [Unknown]
  - Product dose omission [Unknown]
  - Sepsis [Recovered/Resolved]
  - Anaemia [Recovered/Resolved]
  - Anxiety [Recovered/Resolved]
  - Coma [Recovered/Resolved]
  - Respiratory failure [Recovered/Resolved]
  - Insomnia [Recovered/Resolved]
  - Feeling abnormal [Recovered/Resolved]
  - Body temperature increased [Recovered/Resolved]
  - Acute kidney injury [Recovered/Resolved]
  - Malaise [Unknown]

NARRATIVE: CASE EVENT DATE: 20180628
